FAERS Safety Report 4333447-2 (Version None)
Quarter: 2004Q1

REPORT INFORMATION
  Report Type: 
  Country: None (occurrence: None)
  Receive Date: 20040330
  Receipt Date: 20040324
  Transmission Date: 20041129
  Serious: No
  Sender: FDA-Public Use
  Company Number: 2004UW05745

PATIENT
  Age: 57 Year
  Sex: Female
  Weight: 61.2356 kg

DRUGS (1)
  1. ARIMIDEX [Suspect]
     Dosage: 1 MG PO
     Route: 048
     Dates: start: 20020201

REACTIONS (1)
  - PAGET'S DISEASE OF THE VULVA [None]
